FAERS Safety Report 13010950 (Version 2)
Quarter: 2018Q3

REPORT INFORMATION
  Report Type: Spontaneous
  Country: US (occurrence: US)
  Receive Date: 20161208
  Receipt Date: 20180703
  Transmission Date: 20181010
  Serious: Yes (Hospitalization, Other)
  Sender: FDA-Public Use
  Company Number: US-BAYER-2016-231452

PATIENT
  Age: 67 Year
  Sex: Female
  Weight: 65.76 kg

DRUGS (7)
  1. ALKA?SELTZER PLUS COLD FORMULA [Suspect]
     Active Substance: ASPIRIN\CHLORPHENIRAMINE MALEATE\PHENYLEPHRINE BITARTRATE
     Indication: ARTHRALGIA
     Dosage: UNK
     Route: 058
     Dates: end: 201511
  2. HYDROCODONE [Concomitant]
     Active Substance: HYDROCODONE
     Indication: RHEUMATOID ARTHRITIS
  3. OXYCODONE [Concomitant]
     Active Substance: OXYCODONE
     Indication: RHEUMATOID ARTHRITIS
     Dosage: UNK
  4. MULTIPLE VITAMINS [Concomitant]
     Active Substance: VITAMINS
     Indication: VITAMIN SUPPLEMENTATION
  5. LEVOTHYROXINE. [Concomitant]
     Active Substance: LEVOTHYROXINE
     Indication: HYPOTHYROIDISM
  6. HUMIRA [Suspect]
     Active Substance: ADALIMUMAB
     Indication: RHEUMATOID ARTHRITIS
     Dosage: 40 MG IN 2?2, QD
     Route: 058
     Dates: start: 20140801
  7. LISINOPRIL. [Concomitant]
     Active Substance: LISINOPRIL
     Indication: HYPERTENSION
     Dosage: UNK

REACTIONS (16)
  - Haematochezia [Recovering/Resolving]
  - Haematemesis [Recovering/Resolving]
  - Haematemesis [Recovering/Resolving]
  - Nasopharyngitis [Not Recovered/Not Resolved]
  - Product use in unapproved indication [Unknown]
  - Gastric ulcer haemorrhage [Recovering/Resolving]
  - Expired product administered [None]
  - Gastric ulcer [Recovering/Resolving]
  - Haematochezia [Recovering/Resolving]
  - Faeces discoloured [Unknown]
  - Pyrexia [Not Recovered/Not Resolved]
  - Blood disorder [Unknown]
  - Gastric ulcer [Recovering/Resolving]
  - Hyperhidrosis [Not Recovered/Not Resolved]
  - Arthralgia [Not Recovered/Not Resolved]
  - Arthralgia [Not Recovered/Not Resolved]

NARRATIVE: CASE EVENT DATE: 2014
